FAERS Safety Report 16204731 (Version 3)
Quarter: 2019Q2

REPORT INFORMATION
  Report Type: Report from Study
  Country: TR (occurrence: TR)
  Receive Date: 20190416
  Receipt Date: 20190430
  Transmission Date: 20190711
  Serious: Yes (Hospitalization)
  Sender: FDA-Public Use
  Company Number: PHHY2019TR087679

PATIENT
  Age: 72 Year
  Sex: Male
  Weight: 75 kg

DRUGS (2)
  1. MIDOSTAURIN [Suspect]
     Active Substance: MIDOSTAURIN
     Indication: SYSTEMIC MASTOCYTOSIS
     Dosage: 100 MG, UNK
     Route: 048
     Dates: start: 20180607, end: 20190317
  2. MIDOSTAURIN [Suspect]
     Active Substance: MIDOSTAURIN
     Dosage: 100 MG, QD
     Route: 048
     Dates: start: 20190404

REACTIONS (2)
  - Ascites [Recovering/Resolving]
  - Cardiac cirrhosis [Unknown]

NARRATIVE: CASE EVENT DATE: 20190318
